FAERS Safety Report 5665372-9 (Version None)
Quarter: 2008Q1

REPORT INFORMATION
  Report Type: 
  Country: None (occurrence: None)
  Receive Date: 20080314
  Receipt Date: 20071206
  Transmission Date: 20080703
  Serious: No
  Sender: FDA-Public Use
  Company Number: US-ABBOTT-07P-163-0427824-00

PATIENT
  Sex: Male
  Weight: 83.99 kg

DRUGS (8)
  1. HUMIRA [Suspect]
     Indication: PSORIATIC ARTHROPATHY
     Route: 058
     Dates: start: 20071001, end: 20071101
  2. QUINAPRIL HCL [Concomitant]
     Indication: BLOOD PRESSURE
     Route: 048
  3. HYDROCHLOROTHIAZIDE [Concomitant]
     Indication: BLOOD PRESSURE
     Route: 048
  4. TACLONEX [Concomitant]
     Indication: PSORIASIS
     Route: 061
     Dates: start: 20071001
  5. IBUPROFEN [Concomitant]
     Indication: PAIN
  6. IBUPROFEN [Concomitant]
  7. LORATADINE [Concomitant]
     Indication: SINUSITIS
  8. LORATADINE [Concomitant]
     Indication: TINNITUS

REACTIONS (2)
  - SINUSITIS [None]
  - TINNITUS [None]
